FAERS Safety Report 25990849 (Version 1)
Quarter: 2025Q4

REPORT INFORMATION
  Report Type: Report from Study
  Country: US (occurrence: US)
  Receive Date: 20251103
  Receipt Date: 20251103
  Transmission Date: 20260118
  Serious: Yes (Other)
  Sender: ALEXION PHARMACEUTICALS
  Company Number: US-AstraZeneca-CH-00979923A

PATIENT
  Sex: Female

DRUGS (2)
  1. BENRALIZUMAB [Suspect]
     Active Substance: BENRALIZUMAB
     Route: 065
  2. BENRALIZUMAB [Suspect]
     Active Substance: BENRALIZUMAB

REACTIONS (21)
  - Drug ineffective [Unknown]
  - Rhinorrhoea [Unknown]
  - Nasal congestion [Unknown]
  - Sneezing [Unknown]
  - Pruritus [Unknown]
  - Paranasal sinus discomfort [Unknown]
  - Headache [Unknown]
  - Drainage [Unknown]
  - Dysphonia [Unknown]
  - Lacrimation increased [Unknown]
  - Ear pain [Unknown]
  - Adverse drug reaction [Unknown]
  - Productive cough [Unknown]
  - Wheezing [Unknown]
  - Photophobia [Unknown]
  - Urticaria [Unknown]
  - Breath sounds abnormal [Unknown]
  - Migraine [Unknown]
  - Anaphylactic reaction [Unknown]
  - Pruritus [Unknown]
  - Asthma [Unknown]
